FAERS Safety Report 5936736-0 (Version None)
Quarter: 2008Q4

REPORT INFORMATION
  Report Type: 
  Country: None (occurrence: None)
  Receive Date: 20081030
  Receipt Date: 20081023
  Transmission Date: 20090506
  Serious: Yes (Life-Threatening, Hospitalization)
  Sender: FDA-Public Use
  Company Number: US-GILEAD-2008-0018006

PATIENT
  Sex: Female
  Weight: 58.566 kg

DRUGS (13)
  1. LETAIRIS [Suspect]
     Indication: PULMONARY ARTERIAL HYPERTENSION
     Route: 048
     Dates: start: 20070822
  2. PLAVIX [Suspect]
  3. ASPIRIN [Suspect]
     Route: 048
  4. CARDIZEM CD [Concomitant]
  5. CLONIDINE [Concomitant]
  6. FOSAMAX [Concomitant]
  7. CARAFATE [Concomitant]
  8. NITROSTAT [Concomitant]
  9. THEO-DUR [Concomitant]
  10. ALBUTEROL [Concomitant]
  11. NASALCROM SPRAY [Concomitant]
  12. CLONAZEPAM [Concomitant]
  13. TUMS [Concomitant]

REACTIONS (1)
  - DIVERTICULUM INTESTINAL HAEMORRHAGIC [None]
